FAERS Safety Report 10145658 (Version 3)
Quarter: 2014Q2

REPORT INFORMATION
  Report Type: Report from Study
  Country: CA (occurrence: CA)
  Receive Date: 20140501
  Receipt Date: 20140624
  Transmission Date: 20141212
  Serious: No
  Sender: FDA-Public Use
  Company Number: PHHY2014CA049537

PATIENT
  Age: 64 Year
  Sex: Female

DRUGS (12)
  1. ACLASTA [Suspect]
     Indication: OSTEOPOROSIS
     Dosage: 5 MG, UNK
     Route: 042
     Dates: start: 20081027
  2. ACLASTA [Suspect]
     Dosage: 5 MG, UNK
     Route: 042
     Dates: start: 20090114
  3. ACLASTA [Suspect]
     Dosage: 5 MG, UNK
     Route: 042
     Dates: start: 20100216
  4. ACLASTA [Suspect]
     Dosage: 5 MG, UNK
     Route: 042
     Dates: start: 20131230
  5. EFEXOR XR [Concomitant]
     Dosage: 225 MG, UNK
     Route: 048
  6. ZOCOR [Concomitant]
     Dosage: 20 MG, UNK
  7. RISPERIDONE [Concomitant]
     Dosage: 0.25 MG, UNK
  8. DOMPERIDONE [Concomitant]
     Dosage: 10 MG, TID
  9. OXYBUTYNIN [Concomitant]
     Dosage: 5 MG, BID
  10. ATROVENT [Concomitant]
     Dosage: UNK UKN, UNK
  11. SALBUTAMOL [Concomitant]
     Dosage: UNK UKN, UNK
  12. ADVAIR [Concomitant]
     Dosage: UNK UKN, UNK

REACTIONS (5)
  - Viral infection [Recovered/Resolved]
  - Respiratory tract congestion [Unknown]
  - Oropharyngeal pain [Unknown]
  - Chest pain [Unknown]
  - Malaise [Unknown]
